FAERS Safety Report 21901688 (Version 1)
Quarter: 2023Q1

REPORT INFORMATION
  Report Type: Spontaneous
  Country: TW (occurrence: TW)
  Receive Date: 20230124
  Receipt Date: 20230124
  Transmission Date: 20230418
  Serious: Yes (Other)
  Sender: FDA-Public Use
  Company Number: TW-MTPC-MTPC2023-0001234

PATIENT
  Age: 32 Year
  Sex: Male

DRUGS (1)
  1. REMICADE [Suspect]
     Active Substance: INFLIXIMAB
     Indication: Crohn^s disease
     Dosage: 300MG Q8W(LAST DOSE ON 2022/12/30)
     Route: 042
     Dates: start: 20210814, end: 20221230

REACTIONS (1)
  - HIV test positive [Unknown]

NARRATIVE: CASE EVENT DATE: 20230105
